FAERS Safety Report 6219353-7 (Version None)
Quarter: 2009Q2

REPORT INFORMATION
  Report Type: 
  Country: None (occurrence: None)
  Receive Date: 20090609
  Receipt Date: 20090529
  Transmission Date: 20091009
  Serious: Yes (Other)
  Sender: FDA-Public Use
  Company Number: JP-BAYER-200911787BYL

PATIENT
  Age: 25 Year
  Sex: Female
  Weight: 45 kg

DRUGS (23)
  1. FLUDARA [Suspect]
     Indication: STEM CELL TRANSPLANT
     Dosage: UNIT DOSE: 50 MG
     Route: 042
     Dates: start: 20081208, end: 20081213
  2. BUSULFEX [Suspect]
     Indication: STEM CELL TRANSPLANT
     Route: 041
     Dates: start: 20081210, end: 20081211
  3. FUNGUARD [Suspect]
     Indication: INFECTION PROPHYLAXIS
     Route: 041
     Dates: start: 20090305
  4. FUNGUARD [Suspect]
     Route: 041
     Dates: start: 20081209, end: 20090129
  5. FUNGUARD [Suspect]
     Route: 041
     Dates: start: 20090130, end: 20090201
  6. FUNGUARD [Suspect]
     Route: 041
     Dates: start: 20081208, end: 20081208
  7. SANDIMMUNE [Suspect]
     Indication: PROPHYLAXIS AGAINST GRAFT VERSUS HOST DISEASE
     Dosage: 80-160 MG/DAY
     Route: 041
     Dates: start: 20081215
  8. SOLU-MEDROL [Suspect]
     Indication: ALLERGY PROPHYLAXIS
     Route: 065
     Dates: start: 20081216, end: 20081216
  9. DENOSINE [Suspect]
     Indication: INFECTION PROPHYLAXIS
     Route: 041
     Dates: start: 20090225, end: 20090318
  10. AMBISOME [Suspect]
     Indication: INFECTION
     Route: 041
     Dates: start: 20090202, end: 20090304
  11. CELLCEPT [Suspect]
     Indication: GRAFT VERSUS HOST DISEASE
     Route: 048
     Dates: start: 20090108, end: 20090224
  12. CELLCEPT [Suspect]
     Route: 048
     Dates: start: 20090225, end: 20090304
  13. BREDININ [Suspect]
     Indication: GRAFT VERSUS HOST DISEASE
     Route: 048
     Dates: start: 20090313
  14. BREDININ [Suspect]
     Route: 048
     Dates: start: 20090225, end: 20090312
  15. PREDONINE [Suspect]
     Indication: GRAFT VERSUS HOST DISEASE
     Route: 065
     Dates: start: 20090312
  16. DEPAKENE [Suspect]
     Indication: CONVULSION PROPHYLAXIS
     Route: 048
     Dates: start: 20081208, end: 20081213
  17. ZOVIRAX [Concomitant]
     Indication: INFECTION PROPHYLAXIS
     Route: 048
     Dates: start: 20081209, end: 20090115
  18. ACICLOVIN [Concomitant]
     Indication: INFECTION PROPHYLAXIS
     Route: 048
     Dates: start: 20090115
  19. METHOTREXATE [Concomitant]
     Indication: PROPHYLAXIS AGAINST GRAFT VERSUS HOST DISEASE
     Route: 065
     Dates: start: 20081217, end: 20081217
  20. METHOTREXATE [Concomitant]
     Route: 065
     Dates: start: 20081219, end: 20081222
  21. SOLU-CORTEF [Concomitant]
     Indication: PROPHYLAXIS
     Route: 065
     Dates: start: 20081215, end: 20081215
  22. CONCENTRATED RED CELLS [Concomitant]
     Route: 041
     Dates: start: 20081210, end: 20081222
  23. PLATELETS [Concomitant]
     Route: 041
     Dates: start: 20081212, end: 20081224

REACTIONS (23)
  - ABDOMINAL PAIN [None]
  - ABNORMAL SENSATION IN EYE [None]
  - ACUTE GRAFT VERSUS HOST DISEASE [None]
  - ALANINE AMINOTRANSFERASE INCREASED [None]
  - ANAEMIA [None]
  - ASPARTATE AMINOTRANSFERASE INCREASED [None]
  - BLOOD ALKALINE PHOSPHATASE INCREASED [None]
  - BLOOD BILIRUBIN INCREASED [None]
  - BLOOD LACTATE DEHYDROGENASE INCREASED [None]
  - BLOOD UREA INCREASED [None]
  - CYTOMEGALOVIRUS VIRAEMIA [None]
  - DIARRHOEA [None]
  - DRY SKIN [None]
  - EYE PRURITUS [None]
  - FEBRILE NEUTROPENIA [None]
  - GAMMA-GLUTAMYLTRANSFERASE INCREASED [None]
  - HYPERLIPIDAEMIA [None]
  - HYPOKALAEMIA [None]
  - HYPOMAGNESAEMIA [None]
  - PRURITUS [None]
  - PYREXIA [None]
  - SKIN CANDIDA [None]
  - SYSTEMIC MYCOSIS [None]
